FAERS Safety Report 6027934-9 (Version None)
Quarter: 2009Q1

REPORT INFORMATION
  Report Type: 
  Country: None (occurrence: None)
  Receive Date: 20090105
  Receipt Date: 20081230
  Transmission Date: 20090719
  Serious: Yes (Death, Other)
  Sender: FDA-Public Use
  Company Number: PHHY2008AR12613

PATIENT
  Sex: Male

DRUGS (4)
  1. DIOVAN HCT [Suspect]
     Indication: HYPERTENSION
     Dosage: 160 MG, QD
     Dates: start: 20031101
  2. ACALIX [Concomitant]
  3. ASPIRIN [Concomitant]
  4. REDUSTEROL (SIMVASTATIN) [Concomitant]

REACTIONS (2)
  - DEATH [None]
  - EMPHYSEMA [None]
